FAERS Safety Report 7194141-6 (Version None)
Quarter: 2010Q4

REPORT INFORMATION
  Report Type: 
  Country: None (occurrence: None)
  Receive Date: 20101223
  Receipt Date: 20101011
  Transmission Date: 20110411
  Serious: Yes (Hospitalization)
  Sender: FDA-Public Use
  Company Number: US-AMGEN-TCS435695

PATIENT

DRUGS (4)
  1. ENBREL [Suspect]
     Indication: PSORIASIS
     Dosage: UNK UNK, QWK
     Dates: end: 20100117
  2. VYTORIN [Concomitant]
     Indication: BLOOD CHOLESTEROL
     Dosage: UNK UNK, UNK
     Route: 048
  3. HYDROCHLOROTHIAZIDE [Concomitant]
     Indication: BLOOD PRESSURE
     Dosage: UNK UNK, UNK
     Route: 048
  4. EXFORGE                            /01634301/ [Concomitant]
     Indication: BLOOD PRESSURE

REACTIONS (1)
  - AMOEBIC DYSENTERY [None]
